FAERS Safety Report 12124782 (Version 3)
Quarter: 2017Q4

REPORT INFORMATION
  Report Type: Spontaneous
  Country: US (occurrence: US)
  Receive Date: 20160229
  Receipt Date: 20171213
  Transmission Date: 20180320
  Serious: Yes (Other)
  Sender: FDA-Public Use
  Company Number: US-PFIZER INC-2016103080

PATIENT
  Age: 83 Year
  Sex: Male

DRUGS (2)
  1. LATANOPROST. [Suspect]
     Active Substance: LATANOPROST
     Dosage: UNK
  2. LATANOPROST. [Suspect]
     Active Substance: LATANOPROST
     Indication: BORDERLINE GLAUCOMA
     Dosage: UNK, DAILY (1 DROP AT PM)
     Dates: start: 201404

REACTIONS (1)
  - Drug ineffective [Recovering/Resolving]
